FAERS Safety Report 7626550-2 (Version None)
Quarter: 2011Q3

REPORT INFORMATION
  Report Type: 
  Country: None (occurrence: None)
  Receive Date: 20110721
  Receipt Date: 20110718
  Transmission Date: 20111222
  Serious: Yes (Other)
  Sender: FDA-Public Use
  Company Number: US-GLAXOSMITHKLINE-A0937068A

PATIENT
  Age: 80 Year
  Sex: Male

DRUGS (2)
  1. UNKNOWN [Concomitant]
  2. ADVAIR DISKUS 100/50 [Suspect]
     Indication: PRODUCT USED FOR UNKNOWN INDICATION
     Route: 055
     Dates: start: 20110601, end: 20110601

REACTIONS (1)
  - CARDIAC FAILURE CONGESTIVE [None]
